FAERS Safety Report 6150995-3 (Version None)
Quarter: 2009Q2

REPORT INFORMATION
  Report Type: 
  Country: None (occurrence: None)
  Receive Date: 20090410
  Receipt Date: 20090313
  Transmission Date: 20091009
  Serious: No
  Sender: FDA-Public Use
  Company Number: A0766879A

PATIENT
  Age: 54 Year
  Sex: Female

DRUGS (6)
  1. TYKERB [Suspect]
     Indication: BREAST CANCER
     Dosage: 1250MG PER DAY
     Route: 048
     Dates: start: 20081229
  2. COMPAZINE [Concomitant]
  3. METOPROLOL SUCCINATE [Concomitant]
  4. BACLOFEN [Concomitant]
  5. ADVIL [Concomitant]
  6. BENADRYL [Concomitant]

REACTIONS (3)
  - NAUSEA [None]
  - PRODUCT QUALITY ISSUE [None]
  - VOMITING [None]
